FAERS Safety Report 19445455 (Version 1)
Quarter: 2021Q2

REPORT INFORMATION
  Report Type: Spontaneous
  Country: US (occurrence: US)
  Receive Date: 20210622
  Receipt Date: 20210622
  Transmission Date: 20210717
  Serious: Yes (Other)
  Sender: FDA-Public Use
  Company Number: US-AUROBINDO-AUR-APL-2021-025311

PATIENT
  Age: 53 Year
  Sex: Male

DRUGS (1)
  1. LAMIVUDINE. [Suspect]
     Active Substance: LAMIVUDINE
     Indication: PRODUCT USED FOR UNKNOWN INDICATION
     Dosage: UNK
     Route: 065

REACTIONS (5)
  - Obesity [Unknown]
  - Ophthalmoplegia [Unknown]
  - Eyelid ptosis [Unknown]
  - Lipodystrophy acquired [Unknown]
  - Lipoatrophy [Unknown]
